FAERS Safety Report 23973096 (Version 3)
Quarter: 2024Q3

REPORT INFORMATION
  Report Type: Spontaneous
  Country: JP (occurrence: None)
  Receive Date: 20240613
  Receipt Date: 20240808
  Transmission Date: 20241017
  Serious: Yes (Hospitalization, Disabling, Other)
  Sender: ASTRAZENECA
  Company Number: 2024A132993

PATIENT
  Age: 89 Year
  Sex: Female
  Weight: 43 kg

DRUGS (10)
  1. DAPAGLIFLOZIN [Suspect]
     Active Substance: DAPAGLIFLOZIN
     Indication: Type 2 diabetes mellitus
     Route: 048
     Dates: start: 20240229, end: 20240526
  2. RYBELSUS [Concomitant]
     Active Substance: SEMAGLUTIDE
     Indication: Type 2 diabetes mellitus
     Route: 048
     Dates: start: 20240425, end: 20240526
  3. AMLODIPINE [Concomitant]
     Active Substance: AMLODIPINE BESYLATE
     Indication: Hypertension
     Route: 048
     Dates: start: 20071122
  4. VONOPRAZAN FUMARATE [Concomitant]
     Active Substance: VONOPRAZAN FUMARATE
     Indication: Gastrooesophageal reflux disease
     Route: 048
     Dates: start: 20200728
  5. ALFACALCIDOL [Concomitant]
     Active Substance: ALFACALCIDOL
     Indication: Osteoporosis
     Route: 048
     Dates: start: 20131128, end: 20240526
  6. SODIUM FERROUS CITRATE [Concomitant]
     Active Substance: SODIUM FERROUS CITRATE
     Indication: Iron deficiency anaemia
     Route: 048
     Dates: start: 20131109, end: 20240526
  7. JANUVIA [Concomitant]
     Active Substance: SITAGLIPTIN PHOSPHATE
     Indication: Type 2 diabetes mellitus
     Route: 048
     Dates: start: 20121227, end: 20240424
  8. GLICLAZIDE [Concomitant]
     Active Substance: GLICLAZIDE
     Indication: Type 2 diabetes mellitus
     Route: 048
     Dates: start: 20240528
  9. TENELIA OD [Concomitant]
     Indication: Type 2 diabetes mellitus
     Route: 048
     Dates: start: 20240528
  10. INSULIN NOS [Concomitant]
     Active Substance: INSULIN NOS
     Dosage: DOSE UNKNOWN

REACTIONS (5)
  - Ketoacidosis [Recovering/Resolving]
  - Urinary tract infection [Recovering/Resolving]
  - Decreased appetite [Recovered/Resolved]
  - Cystitis [Recovering/Resolving]
  - Dehydration [Unknown]

NARRATIVE: CASE EVENT DATE: 20240523
